FAERS Safety Report 7456292-8 (Version None)
Quarter: 2011Q2

REPORT INFORMATION
  Report Type: 
  Country: None (occurrence: None)
  Receive Date: 20110503
  Receipt Date: 20110405
  Transmission Date: 20111010
  Serious: Yes (Hospitalization, Other)
  Sender: FDA-Public Use
  Company Number: US-BAYER-2010-003362

PATIENT
  Age: 27 Year
  Sex: Female
  Weight: 81.633 kg

DRUGS (7)
  1. GLUCOPHAGE XR [Concomitant]
     Indication: DIABETES MELLITUS
     Dosage: 500 MG, QD
     Route: 048
     Dates: start: 20060530
  2. VANIQA [Concomitant]
     Dosage: 13.9 %, BID
     Route: 061
  3. YASMIN [Suspect]
     Dosage: UNK
     Dates: start: 20080416, end: 20080801
  4. DROSPIRENONE AND ETHINYL ESTRADIOL [Suspect]
     Indication: CONTRACEPTION
     Dosage: UNK
     Route: 048
     Dates: start: 20080816, end: 20081119
  5. YASMIN [Suspect]
     Indication: CONTRACEPTION
     Dosage: UNK
     Route: 048
     Dates: start: 20060530, end: 20061201
  6. SYNTHROID [Concomitant]
     Indication: HYPOTHYROIDISM
     Dosage: 0.05 MG, QD
     Route: 048
     Dates: start: 20060615
  7. METROGEL-VAGINAL [CARBOMER,EDETIC AC,METRONIDAZ,PARAHYDROXYBENZ AC,PRO [Concomitant]
     Dosage: 0.75 %, UNK
     Route: 067

REACTIONS (9)
  - OEDEMA PERIPHERAL [None]
  - ARTHRALGIA [None]
  - JOINT SWELLING [None]
  - GAIT DISTURBANCE [None]
  - PAIN [None]
  - PAIN IN EXTREMITY [None]
  - DEEP VEIN THROMBOSIS [None]
  - EMOTIONAL DISTRESS [None]
  - ANXIETY [None]
